FAERS Safety Report 8917479 (Version 3)
Quarter: 2013Q4

REPORT INFORMATION
  Report Type: Spontaneous
  Country: US (occurrence: US)
  Receive Date: 20121120
  Receipt Date: 20131022
  Transmission Date: 20140711
  Serious: Yes (Hospitalization, Disabling, Other)
  Sender: FDA-Public Use
  Company Number: US-009507513-1211USA007610

PATIENT
  Sex: Female
  Weight: 61.22 kg

DRUGS (3)
  1. FOSAMAX [Suspect]
     Indication: OSTEOPENIA
     Dosage: 70 MG, UNK
     Route: 048
     Dates: start: 200404, end: 200802
  2. FOSAMAX [Suspect]
     Indication: OSTEOPENIA
     Dosage: 70 MG, UNK
     Route: 048
     Dates: start: 200802, end: 201012
  3. ALENDRONATE SODIUM [Suspect]
     Indication: OSTEOPENIA
     Dosage: 70 MG, UNK
     Route: 048
     Dates: start: 200802, end: 201012

REACTIONS (24)
  - Open reduction of fracture [Unknown]
  - Biopsy bone [Unknown]
  - Debridement [Unknown]
  - Osteonecrosis of jaw [Not Recovered/Not Resolved]
  - Osteomyelitis [Not Recovered/Not Resolved]
  - Jaw fracture [Unknown]
  - Depression [Unknown]
  - Anxiety [Unknown]
  - Dental implantation [Unknown]
  - Spinal compression fracture [Unknown]
  - Lung infiltration [Unknown]
  - Hyperlipidaemia [Unknown]
  - Torticollis [Unknown]
  - Arachnoid cyst [Unknown]
  - Cerebrovascular accident [Unknown]
  - Bacterial disease carrier [Unknown]
  - Skin infection [Unknown]
  - Gastric bypass [Unknown]
  - Headache [Unknown]
  - Restless legs syndrome [Unknown]
  - Tenolysis [Unknown]
  - Tenosynovitis stenosans [Unknown]
  - Cataract operation [Unknown]
  - Dystonia [Unknown]
